FAERS Safety Report 4604819-3 (Version None)
Quarter: 2005Q2

REPORT INFORMATION
  Report Type: 
  Country: None (occurrence: None)
  Receive Date: 20050224
  Receipt Date: 20041007
  Transmission Date: 20051028
  Serious: Yes (Death)
  Sender: FDA-Public Use
  Company Number: 04P-163-0276489-00

PATIENT
  Sex: Male

DRUGS (2)
  1. ABBOKINASE [Suspect]
     Indication: VASCULAR BYPASS GRAFT
     Dosage: 250000 UNIT, ONCE, INTRAVENOUS
     Route: 042
  2. HEPARIN [Concomitant]

REACTIONS (1)
  - HAEMORRHAGE INTRACRANIAL [None]
